FAERS Safety Report 9407836 (Version 6)
Quarter: 2016Q1

REPORT INFORMATION
  Report Type: Spontaneous
  Country: US (occurrence: None)
  Receive Date: 20130423
  Receipt Date: 20160106
  Transmission Date: 20160526
  Serious: Yes (Other)
  Sender: FDA-Public Use
  Company Number: ADR-2012-00899

PATIENT
  Age: 53 Year
  Sex: Female

DRUGS (2)
  1. ORAL MEDICATIONS (NOT SPECIFIED) [Suspect]
     Active Substance: UNSPECIFIED INGREDIENT
  2. BACLOFEN INTRATHECAL [Suspect]
     Active Substance: BACLOFEN
     Indication: MUSCLE SPASTICITY

REACTIONS (38)
  - Nausea [None]
  - Muscle tightness [None]
  - Tinnitus [None]
  - Performance status decreased [None]
  - Headache [None]
  - Vomiting [None]
  - Palpitations [None]
  - Memory impairment [None]
  - Quality of life decreased [None]
  - Asthenia [None]
  - Retching [None]
  - Vision blurred [None]
  - Hypotonia [None]
  - Adverse drug reaction [None]
  - Coma [None]
  - Tachycardia [None]
  - Therapeutic response decreased [None]
  - Malaise [None]
  - Dehydration [None]
  - Insomnia [None]
  - Overdose [None]
  - Thinking abnormal [None]
  - Feeling jittery [None]
  - Post procedural complication [None]
  - Decreased appetite [None]
  - Weight decreased [None]
  - Depressed mood [None]
  - Muscle spasticity [None]
  - Movement disorder [None]
  - Altered state of consciousness [None]
  - Feeding disorder [None]
  - Dizziness [None]
  - Mental status changes [None]
  - Fatigue [None]
  - Drug withdrawal syndrome [None]
  - Feeling abnormal [None]
  - Drug hypersensitivity [None]
  - Cognitive disorder [None]
